FAERS Safety Report 5015884-6 (Version None)
Quarter: 2006Q2

REPORT INFORMATION
  Report Type: 
  Country: None (occurrence: None)
  Receive Date: 20060526
  Receipt Date: 20060512
  Transmission Date: 20061013
  Serious: Yes (Life-Threatening, Hospitalization)
  Sender: FDA-Public Use
  Company Number: 2002EU005525

PATIENT
  Age: 9 Year
  Sex: Male
  Weight: 30 kg

DRUGS (5)
  1. PROGRAF [Suspect]
     Indication: LIVER TRANSPLANT
     Dosage: UNKNOWN/D; ORAL
     Route: 048
     Dates: start: 19991101
  2. PREDNISONE [Concomitant]
  3. IRON [Concomitant]
  4. POLYVITAMIN (VITAMINS NOS) [Concomitant]
  5. MAGNESIUM [Concomitant]

REACTIONS (3)
  - ANAEMIA HAEMOLYTIC AUTOIMMUNE [None]
  - PANCYTOPENIA [None]
  - POST PROCEDURAL COMPLICATION [None]
